FAERS Safety Report 5017078-7 (Version None)
Quarter: 2006Q2

REPORT INFORMATION
  Report Type: 
  Country: None (occurrence: None)
  Receive Date: 20060526
  Receipt Date: 20060510
  Transmission Date: 20061013
  Serious: Yes (Other)
  Sender: FDA-Public Use
  Company Number: US200605002644

PATIENT
  Age: 75 Year
  Sex: Male

DRUGS (5)
  1. STRATTERA [Suspect]
     Indication: ATTENTION DEFICIT/HYPERACTIVITY DISORDER
     Dosage: 40 MG, DAILY (1/D),
     Dates: start: 20060508
  2. LISINOPRIL [Concomitant]
  3. ALLOPURINOL [Concomitant]
  4. VICODIN [Concomitant]
  5. VITAMINS [Concomitant]

REACTIONS (1)
  - HYPOTENSION [None]
